FAERS Safety Report 4559489-X (Version None)
Quarter: 2005Q1

REPORT INFORMATION
  Report Type: 
  Country: None (occurrence: None)
  Receive Date: 20050119
  Receipt Date: 20050111
  Transmission Date: 20050727
  Serious: Yes (Other)
  Sender: FDA-Public Use
  Company Number: 2004107891

PATIENT
  Age: 60 Year
  Sex: Female

DRUGS (3)
  1. ALDACTONE [Suspect]
     Indication: ILL-DEFINED DISORDER
  2. BETA BLOCKING AGENTS (BETA BLOCKING AGENTS) [Concomitant]
  3. INSULIN [Concomitant]

REACTIONS (2)
  - ANGIONEUROTIC OEDEMA [None]
  - DISEASE RECURRENCE [None]
